FAERS Safety Report 8825660 (Version 1)
Quarter: 2012Q4

REPORT INFORMATION
  Report Type: 
  Country: DK (occurrence: GB)
  Receive Date: 20121004
  Receipt Date: 20121004
  Transmission Date: 20130627
  Serious: Yes (Other)
  Sender: FDA-Public Use
  Company Number: GB-FRI-1000039116

PATIENT
  Age: 20 Year
  Sex: Female

DRUGS (2)
  1. CITALOPRAM [Suspect]
     Indication: ANXIETY
     Dosage: 10 mg
     Route: 048
     Dates: start: 20120830
  2. CITALOPRAM [Suspect]
     Indication: DEPRESSION

REACTIONS (1)
  - Intentional self-injury [Recovering/Resolving]
